FAERS Safety Report 5704386-7 (Version None)
Quarter: 2008Q2

REPORT INFORMATION
  Report Type: 
  Country: None (occurrence: None)
  Receive Date: 20080414
  Receipt Date: 20080403
  Transmission Date: 20081010
  Serious: Yes (Death, Hospitalization)
  Sender: FDA-Public Use
  Company Number: A0722443A

PATIENT
  Age: 28 Year
  Sex: Male

DRUGS (2)
  1. ADVAIR HFA [Suspect]
     Indication: ASTHMA
     Dates: start: 20060919
  2. ALBUTEROL [Concomitant]

REACTIONS (2)
  - ASTHMA [None]
  - CARDIO-RESPIRATORY ARREST [None]
